FAERS Safety Report 8528761-0 (Version None)
Quarter: 2012Q3

REPORT INFORMATION
  Report Type: 
  Country: None (occurrence: None)
  Receive Date: 20120723
  Receipt Date: 20120710
  Transmission Date: 20120928
  Serious: Yes (Disabling, Other)
  Sender: FDA-Public Use
  Company Number: US-009507513-1203USA03469

PATIENT

DRUGS (2)
  1. FOSAMAX [Suspect]
     Route: 048
  2. FOSAMAX [Suspect]
     Dosage: UNK
     Route: 048

REACTIONS (2)
  - FEMUR FRACTURE [None]
  - BONE DISORDER [None]
